FAERS Safety Report 24902131 (Version 2)
Quarter: 2025Q1

REPORT INFORMATION
  Report Type: Report from Study
  Country: US (occurrence: US)
  Receive Date: 20250129
  Receipt Date: 20250214
  Transmission Date: 20250409
  Serious: Yes (Hospitalization)
  Sender: AMNEAL
  Company Number: US-AMNEAL PHARMACEUTICALS-2024-AMRX-00265

PATIENT
  Sex: Male

DRUGS (5)
  1. CARBIDOPA\LEVODOPA [Suspect]
     Active Substance: CARBIDOPA\LEVODOPA
     Indication: Product used for unknown indication
     Dosage: 04 CAPSULES, 3X/DAY
     Route: 048
  2. CARBIDOPA\LEVODOPA [Suspect]
     Active Substance: CARBIDOPA\LEVODOPA
     Dosage: 05 CAPSULES, 3X/DAY
     Route: 048
     Dates: start: 20240509
  3. CARBIDOPA\LEVODOPA [Suspect]
     Active Substance: CARBIDOPA\LEVODOPA
     Dosage: 23.75/95MG, 05 CAPSULES, 3X/DAY
     Route: 048
     Dates: start: 20241003
  4. CARBIDOPA\LEVODOPA [Suspect]
     Active Substance: CARBIDOPA\LEVODOPA
     Dosage: 23.75/95MG, 04 CAPSULES, 3X/DAY
     Route: 048
     Dates: start: 20241004
  5. CARBIDOPA\LEVODOPA [Suspect]
     Active Substance: CARBIDOPA\LEVODOPA
     Dosage: 23.75/95MG, 05 CAPSULES, 3X/DAY (10 AM, 4 PM AND 10 PM)
     Route: 048

REACTIONS (3)
  - Cerebrovascular accident [Unknown]
  - Tremor [Unknown]
  - Illness [Unknown]
